FAERS Safety Report 6663712-5 (Version None)
Quarter: 2010Q2

REPORT INFORMATION
  Report Type: 
  Country: None (occurrence: None)
  Receive Date: 20100401
  Receipt Date: 20100329
  Transmission Date: 20101027
  Serious: Yes (Death)
  Sender: FDA-Public Use
  Company Number: BR-SANOFI-AVENTIS-2010SA018329

PATIENT
  Age: 60 Year
  Sex: Male
  Weight: 105 kg

DRUGS (3)
  1. TAXOTERE [Suspect]
     Route: 042
     Dates: start: 20100114
  2. TAXOTERE [Suspect]
     Route: 042
     Dates: start: 20100114
  3. PREDNISONE [Concomitant]
     Route: 048
     Dates: start: 20100114

REACTIONS (2)
  - DYSPNOEA [None]
  - RESPIRATORY DISTRESS [None]
